FAERS Safety Report 23166607 (Version 1)
Quarter: 2023Q4

REPORT INFORMATION
  Report Type: Spontaneous
  Country: CN (occurrence: CN)
  Receive Date: 20231109
  Receipt Date: 20231109
  Transmission Date: 20240110
  Serious: Yes (Hospitalization)
  Sender: FDA-Public Use
  Company Number: CN-PFIZER INC-PV202300181979

PATIENT
  Age: 44 Year
  Sex: Male
  Weight: 75 kg

DRUGS (4)
  1. EPIRUBICIN HYDROCHLORIDE [Suspect]
     Active Substance: EPIRUBICIN HYDROCHLORIDE
     Indication: Hepatic cancer
     Dosage: 10 MG, 1X/DAY
     Dates: start: 20230920, end: 20230920
  2. OXALIPLATIN [Suspect]
     Active Substance: OXALIPLATIN
     Indication: Hepatic cancer
     Dosage: 50 MG, 1X/DAY
     Dates: start: 20230920, end: 20230920
  3. TISLELIZUMAB [Suspect]
     Active Substance: TISLELIZUMAB
     Indication: Hepatic cancer
     Dosage: 200 MG, 1X/DAY
     Route: 041
     Dates: start: 20230926, end: 20231026
  4. FLUOROURACIL [Suspect]
     Active Substance: FLUOROURACIL
     Indication: Hepatic cancer
     Dosage: 0.5 G, 1X/DAY
     Dates: start: 20230920, end: 20230920

REACTIONS (3)
  - Hyperadrenocorticism [Not Recovered/Not Resolved]
  - Neutrophil count decreased [Not Recovered/Not Resolved]
  - Myelosuppression [Unknown]

NARRATIVE: CASE EVENT DATE: 20231019
